FAERS Safety Report 13952782 (Version 1)
Quarter: 2017Q3

REPORT INFORMATION
  Report Type: Spontaneous
  Country: US (occurrence: US)
  Receive Date: 20170911
  Receipt Date: 20170911
  Transmission Date: 20171128
  Serious: Yes (Hospitalization, Other)
  Sender: FDA-Public Use
  Company Number: US-TEVA-781774USA

PATIENT
  Age: 80 Year
  Sex: Female

DRUGS (2)
  1. ALCOHOL. [Interacting]
     Active Substance: ALCOHOL
  2. FENTANYL. [Suspect]
     Active Substance: FENTANYL
     Indication: BACK PAIN
     Route: 065

REACTIONS (6)
  - Eye contusion [Unknown]
  - Pneumonia [Unknown]
  - Fall [Unknown]
  - Head injury [Unknown]
  - Alcohol interaction [Unknown]
  - Wrong technique in product usage process [Unknown]

NARRATIVE: CASE EVENT DATE: 2016
